FAERS Safety Report 5441294-3 (Version None)
Quarter: 2007Q3

REPORT INFORMATION
  Report Type: 
  Country: None (occurrence: None)
  Receive Date: 20070903
  Receipt Date: 20070821
  Transmission Date: 20080115
  Serious: Yes (Hospitalization, Disabling, Other)
  Sender: FDA-Public Use
  Company Number: US-MERCK-0707USA01727

PATIENT
  Age: 62 Year
  Sex: Male
  Weight: 101 kg

DRUGS (8)
  1. JANUVIA [Suspect]
     Indication: TYPE 2 DIABETES MELLITUS
     Route: 048
     Dates: start: 20070601
  2. ATENOLOL [Concomitant]
     Route: 065
  3. LISINOPRIL [Concomitant]
     Route: 048
  4. SPIRONOLACTONE [Concomitant]
     Route: 065
  5. LASIX [Concomitant]
     Route: 065
  6. AVANDAMET [Suspect]
     Route: 065
     Dates: end: 20070611
  7. ZOCOR [Concomitant]
     Route: 048
  8. METFORMIN [Concomitant]
     Route: 065

REACTIONS (9)
  - ASCITES [None]
  - CORONARY ARTERY DISEASE [None]
  - CORONARY ARTERY OCCLUSION [None]
  - CORONARY ARTERY STENOSIS [None]
  - DYSPNOEA EXERTIONAL [None]
  - OEDEMA PERIPHERAL [None]
  - ORTHOPNOEA [None]
  - PLEURAL EFFUSION [None]
  - WEIGHT INCREASED [None]
